FAERS Safety Report 14278777 (Version 2)
Quarter: 2018Q1

REPORT INFORMATION
  Report Type: Spontaneous
  Country: US (occurrence: US)
  Receive Date: 20171213
  Receipt Date: 20180314
  Transmission Date: 20180508
  Serious: No
  Sender: FDA-Public Use
  Company Number: US-ELI_LILLY_AND_COMPANY-US201711013182

PATIENT
  Sex: Female

DRUGS (3)
  1. INSULIN, ANIMAL B/PREGULAR [Suspect]
     Active Substance: INSULIN BEEF/PORK
     Indication: PRODUCT USED FOR UNKNOWN INDICATION
     Dosage: UNK, UNKNOWN
     Route: 065
  2. ILETIN I [Suspect]
     Active Substance: INSULIN PORK\INSULIN PURIFIED PORK
     Indication: PRODUCT USED FOR UNKNOWN INDICATION
     Dosage: UNK, UNKNOWN
     Route: 065
  3. ISOMIL                             /00014302/ [Concomitant]
     Indication: MILK ALLERGY

REACTIONS (2)
  - Maternal exposure during pregnancy [Recovered/Resolved]
  - Blood glucose decreased [Recovered/Resolved]
